FAERS Safety Report 5956592-4 (Version None)
Quarter: 2008Q4

REPORT INFORMATION
  Report Type: 
  Country: None (occurrence: None)
  Receive Date: 20081118
  Receipt Date: 20081111
  Transmission Date: 20090506
  Serious: Yes (Other)
  Sender: FDA-Public Use
  Company Number: JP-ASTRAZENECA-2008AP07172

PATIENT
  Age: 56 Year
  Sex: Female

DRUGS (10)
  1. CRESTOR [Suspect]
     Indication: HYPERLIPIDAEMIA
     Route: 048
     Dates: start: 20080327, end: 20080827
  2. ADALAT CC [Concomitant]
     Indication: HYPERTENSION
     Route: 048
     Dates: start: 20080327
  3. DEPAS [Concomitant]
     Indication: ANXIETY
     Dosage: DOSE UNKNOWN. X2/DAY
     Route: 048
     Dates: start: 20080327
  4. LANSOPRAZOLE [Concomitant]
     Indication: DYSPEPSIA
     Route: 048
     Dates: start: 20080327, end: 20080507
  5. SINGULAIR [Concomitant]
     Indication: COUGH
     Route: 048
     Dates: start: 20080507, end: 20080616
  6. GAMOFA D [Concomitant]
     Indication: ABDOMINAL PAIN UPPER
     Route: 048
     Dates: start: 20080515
  7. MUCOSTA [Concomitant]
     Indication: GASTRITIS
     Route: 048
     Dates: start: 20080521
  8. TRANCOLON [Concomitant]
     Indication: DIARRHOEA
     Dosage: DOSE UNKNOWN, X3/DAY
     Route: 048
     Dates: start: 20080616, end: 20080910
  9. LUPRAC [Concomitant]
     Indication: OEDEMA PERIPHERAL
     Dosage: DOSE UNKNOWN, X1/DAY
     Route: 048
     Dates: start: 20080702
  10. BIOFERMIN [Concomitant]
     Indication: DIARRHOEA
     Dosage: DOSE UNKNOWN, X3/DAY
     Route: 048
     Dates: start: 20080917

REACTIONS (6)
  - COUGH [None]
  - DIARRHOEA [None]
  - HEPATIC FUNCTION ABNORMAL [None]
  - NASOPHARYNGITIS [None]
  - OEDEMA PERIPHERAL [None]
  - UTERINE LEIOMYOMA [None]
